FAERS Safety Report 4781192-1 (Version None)
Quarter: 2005Q3

REPORT INFORMATION
  Report Type: 
  Country: None (occurrence: None)
  Receive Date: 20050928
  Receipt Date: 20050919
  Transmission Date: 20060218
  Serious: Yes (Hospitalization)
  Sender: FDA-Public Use
  Company Number: 2005GB01817

PATIENT
  Age: 75 Year
  Sex: Male

DRUGS (9)
  1. BICALUTAMIDE [Suspect]
     Indication: PROSTATE CANCER
     Route: 048
     Dates: end: 20050905
  2. LISINOPRIL [Suspect]
     Indication: ACUTE CORONARY SYNDROME
     Route: 048
     Dates: end: 20050905
  3. ATENOLOL [Concomitant]
     Route: 048
  4. DICLOFENAC [Concomitant]
     Route: 048
  5. CO-DYDRAMOL [Concomitant]
     Route: 048
  6. ASPIRIN [Concomitant]
     Route: 048
  7. SIMVASTATIN [Concomitant]
     Route: 065
  8. AMLODIPINE [Concomitant]
     Route: 065
  9. DORZOLAMIDE [Concomitant]
     Route: 065

REACTIONS (1)
  - SWOLLEN TONGUE [None]
